FAERS Safety Report 4667095-1 (Version None)
Quarter: 2005Q2

REPORT INFORMATION
  Report Type: 
  Country: None (occurrence: None)
  Receive Date: 20050520
  Receipt Date: 20050223
  Transmission Date: 20051028
  Serious: Yes (Other)
  Sender: FDA-Public Use
  Company Number: PHBS2005BR02954

PATIENT
  Age: 63 Year
  Sex: Male
  Weight: 75 kg

DRUGS (3)
  1. ZOLADEX [Concomitant]
  2. ZOMETA [Suspect]
     Indication: METASTASES TO BONE
     Dosage: 4 MG EVERY 28 DAYS
     Route: 042
     Dates: start: 20020503, end: 20041221
  3. BICALUTAMIDE [Concomitant]

REACTIONS (4)
  - DENTAL CLEANING [None]
  - OSTEONECROSIS [None]
  - PURULENT DISCHARGE [None]
  - WOUND DEBRIDEMENT [None]
